FAERS Safety Report 24218381 (Version 5)
Quarter: 2024Q4

REPORT INFORMATION
  Report Type: Report from Study
  Country: CA (occurrence: CA)
  Receive Date: 20240816
  Receipt Date: 20241129
  Transmission Date: 20250114
  Serious: Yes (Hospitalization, Other)
  Sender: ALEXION PHARMACEUTICALS
  Company Number: 2024A173194

PATIENT
  Age: 48 Year

DRUGS (8)
  1. TAGRISSO [Suspect]
     Active Substance: OSIMERTINIB
     Indication: Non-small cell lung cancer metastatic
     Dosage: 80 MILLIGRAM, QD
  2. GABAPENTIN [Concomitant]
     Active Substance: GABAPENTIN
  3. HYDROMORPHONE HCL [Concomitant]
     Active Substance: HYDROMORPHONE HYDROCHLORIDE
  4. DEXAMETHASONE [Concomitant]
     Active Substance: DEXAMETHASONE
  5. PANTOPRAZOLE [Concomitant]
     Active Substance: PANTOPRAZOLE
  6. TRAMADOL HCL [Concomitant]
     Active Substance: TRAMADOL HYDROCHLORIDE
  7. GRAVOL [Concomitant]
     Active Substance: DIMENHYDRINATE
  8. AMOXICILLIN [Concomitant]
     Active Substance: AMOXICILLIN

REACTIONS (15)
  - Haematological infection [Unknown]
  - Pneumonitis [Unknown]
  - Pneumonia [Unknown]
  - Nasal congestion [Unknown]
  - Illness [Unknown]
  - Nausea [Unknown]
  - Mobility decreased [Unknown]
  - Oxygen saturation decreased [Unknown]
  - Epistaxis [Unknown]
  - Hypophagia [Unknown]
  - Bradykinesia [Unknown]
  - Vomiting [Unknown]
  - Fatigue [Unknown]
  - Nasal dryness [Unknown]
  - Insomnia [Unknown]
